FAERS Safety Report 5702322-0 (Version None)
Quarter: 2008Q2

REPORT INFORMATION
  Report Type: 
  Country: None (occurrence: None)
  Receive Date: 20080411
  Receipt Date: 20080403
  Transmission Date: 20081010
  Serious: Yes (Other)
  Sender: FDA-Public Use
  Company Number: PL-ASTRAZENECA-2008SE00895

PATIENT
  Age: 28151 Day
  Sex: Male
  Weight: 87 kg

DRUGS (13)
  1. ROSUVASTATIN [Suspect]
     Indication: CARDIOVASCULAR EVENT PROPHYLAXIS
     Route: 048
     Dates: start: 20060929, end: 20080214
  2. ROSUVASTATIN [Suspect]
     Route: 048
     Dates: start: 20080328
  3. ZAFIRON [Concomitant]
     Indication: CHRONIC OBSTRUCTIVE PULMONARY DISEASE
     Route: 055
     Dates: start: 20010101
  4. ATROVENT [Concomitant]
     Indication: CHRONIC OBSTRUCTIVE PULMONARY DISEASE
     Route: 055
     Dates: start: 20070419
  5. LORISTA [Concomitant]
     Indication: HYPERTENSION
     Route: 048
     Dates: start: 20070705
  6. NILOGRIN [Concomitant]
     Indication: VERTIGO
     Route: 048
     Dates: start: 20070709
  7. FORADIL [Concomitant]
     Indication: CHRONIC OBSTRUCTIVE PULMONARY DISEASE
     Route: 055
     Dates: start: 20070801
  8. ISOPTIN [Concomitant]
     Indication: PALPITATIONS
     Route: 048
     Dates: start: 20071001
  9. SPIRONOL [Concomitant]
     Indication: PROPHYLAXIS
     Route: 048
     Dates: start: 20080129, end: 20080214
  10. ORTANOL [Concomitant]
     Indication: PROPHYLAXIS
     Route: 048
     Dates: start: 20080129, end: 20080211
  11. ENCORTON [Concomitant]
     Indication: CHRONIC OBSTRUCTIVE PULMONARY DISEASE
     Route: 048
     Dates: start: 20080129, end: 20080209
  12. PULMICORT [Concomitant]
     Indication: CHRONIC OBSTRUCTIVE PULMONARY DISEASE
     Route: 055
     Dates: start: 20080120
  13. TERTENSIF [Concomitant]
     Indication: HYPERTENSION
     Route: 048
     Dates: start: 20080120

REACTIONS (1)
  - DERMATITIS EXFOLIATIVE [None]
